FAERS Safety Report 5505629-5 (Version None)
Quarter: 2007Q4

REPORT INFORMATION
  Report Type: 
  Country: None (occurrence: None)
  Receive Date: 20071102
  Receipt Date: 20071018
  Transmission Date: 20080405
  Serious: Yes (Other)
  Sender: FDA-Public Use
  Company Number: US-PFIZER INC-2007088193

PATIENT
  Sex: Male
  Weight: 88.181 kg

DRUGS (5)
  1. DILANTIN [Suspect]
     Indication: CONVULSION
     Dosage: DAILY DOSE:300MG-FREQ:EVERYDAY
     Route: 048
  2. PHENYTOIN [Suspect]
     Indication: CONVULSION
     Dosage: DAILY DOSE:400MG-FREQ:DAILY
  3. ACTOS [Concomitant]
  4. METFORMIN [Concomitant]
  5. HYZAAR [Concomitant]

REACTIONS (2)
  - ANTICONVULSANT DRUG LEVEL BELOW THERAPEUTIC [None]
  - DIABETES MELLITUS [None]
